FAERS Safety Report 16084644 (Version 1)
Quarter: 2019Q1

REPORT INFORMATION
  Report Type: Spontaneous
  Country: US (occurrence: US)
  Receive Date: 20190318
  Receipt Date: 20190318
  Transmission Date: 20190418
  Serious: No
  Sender: FDA-Public Use
  Company Number: US-TEVA-2019-US-1018598

PATIENT
  Sex: Female

DRUGS (1)
  1. ZIAC [Suspect]
     Active Substance: BISOPROLOL FUMARATE\HYDROCHLOROTHIAZIDE
     Indication: BLOOD PRESSURE MEASUREMENT
     Dosage: 10 MILLIGRAM DAILY;
     Route: 048

REACTIONS (1)
  - Lethargy [Unknown]
